FAERS Safety Report 8080982-X (Version None)
Quarter: 2012Q1

REPORT INFORMATION
  Report Type: 
  Country: None (occurrence: None)
  Receive Date: 20120130
  Receipt Date: 20120118
  Transmission Date: 20120608
  Serious: Yes (Hospitalization)
  Sender: FDA-Public Use
  Company Number: FR-MERCK-1201USA02834

PATIENT
  Age: 84 Year
  Sex: Male

DRUGS (11)
  1. BISOPROLOL FUMARATE [Suspect]
     Route: 048
  2. NEXIUM [Suspect]
     Route: 048
     Dates: end: 20111123
  3. ASPIRIN [Suspect]
     Route: 048
  4. DEPAKENE [Suspect]
     Indication: EPILEPSY
     Route: 048
  5. ALEPSAL (CAFFEINE (+) PHENOBARBITAL) [Suspect]
     Indication: EPILEPSY
     Route: 048
  6. ALLOPURINOL [Suspect]
     Route: 048
     Dates: end: 20111123
  7. ATACAND [Suspect]
     Route: 048
     Dates: end: 20111123
  8. LASIX [Suspect]
     Route: 048
     Dates: start: 20110901
  9. VYTORIN [Suspect]
     Route: 048
  10. PLAVIX [Suspect]
     Route: 048
     Dates: start: 20110901
  11. NITRODERM [Suspect]
     Dosage: TRANSDERMAL ROUTE
     Route: 065

REACTIONS (2)
  - APLASTIC ANAEMIA [None]
  - CONDITION AGGRAVATED [None]
